FAERS Safety Report 8584046-8 (Version None)
Quarter: 2012Q3

REPORT INFORMATION
  Report Type: 
  Country: None (occurrence: None)
  Receive Date: 20120810
  Receipt Date: 20120731
  Transmission Date: 20120928
  Serious: No
  Sender: FDA-Public Use
  Company Number: US-009507513-1208USA000424

PATIENT

DRUGS (1)
  1. DULERA [Suspect]
     Indication: ASTHMA
     Dosage: 2 UNK, BID
     Route: 002
     Dates: start: 20120401, end: 20120731

REACTIONS (2)
  - OROPHARYNGEAL PAIN [None]
  - DYSPHONIA [None]
